FAERS Safety Report 10142972 (Version 1)
Quarter: 2014Q2

REPORT INFORMATION
  Report Type: Spontaneous
  Country: GB (occurrence: GB)
  Receive Date: 20140430
  Receipt Date: 20140430
  Transmission Date: 20141212
  Serious: Yes (Other)
  Sender: FDA-Public Use
  Company Number: GB-ASTRAZENECA-2014SE27812

PATIENT
  Age: 82 Year
  Sex: Male

DRUGS (2)
  1. ZOLADEX LA [Suspect]
     Indication: PROSTATE CANCER
     Route: 058
     Dates: start: 20130712
  2. ANTIBIOTICS [Concomitant]

REACTIONS (1)
  - Drug dose omission [Unknown]
